FAERS Safety Report 14162494 (Version 1)
Quarter: 2017Q4

REPORT INFORMATION
  Report Type: Spontaneous
  Country: DK (occurrence: DK)
  Receive Date: 20171106
  Receipt Date: 20171106
  Transmission Date: 20180321
  Serious: Yes (Other)
  Sender: FDA-Public Use
  Company Number: DK-BAXTER-2017BAX037315

PATIENT
  Age: 39 Year
  Sex: Female

DRUGS (19)
  1. DACARBAZINE. [Suspect]
     Active Substance: DACARBAZINE
     Dosage: ABVD THERAPY, POSTPONED SECOND TREATMENT
     Route: 042
  2. DOXORUBICIN [Suspect]
     Active Substance: DOXORUBICIN
     Dosage: ABVD THERAPY, POSTPONED SECOND TREATMENT, STRENGTH: 2 MG/ML
     Route: 042
  3. VELBE [Suspect]
     Active Substance: VINBLASTINE SULFATE
     Indication: HODGKIN^S DISEASE STAGE IV
     Dosage: ABVD THERAPY, FIRST TREATMENT, STRENGTH: 10 MG
     Route: 042
     Dates: start: 20160711
  4. NATULAN [Suspect]
     Active Substance: PROCARBAZINE HYDROCHLORIDE
     Indication: HODGKIN^S DISEASE STAGE IV
     Dosage: THREE SERIES OF BEACOPP THERAPY, STRENGTH: 50 MG
     Route: 048
     Dates: end: 20161025
  5. BLEOMYCIN [Suspect]
     Active Substance: BLEOMYCIN SULFATE
     Dosage: ABVD THERAPY, POSTPONED SECOND TREATMENT, STRENGTH: 15.000 IE
     Route: 065
  6. BLEOMYCIN [Suspect]
     Active Substance: BLEOMYCIN SULFATE
     Dosage: TWO MORE PLANNED TREATMENTS, STRENGTH: 15.000 IE
     Route: 065
     Dates: end: 20161025
  7. DACARBAZINE. [Suspect]
     Active Substance: DACARBAZINE
     Indication: HODGKIN^S DISEASE STAGE IV
     Dosage: ABVD THERAPY, FIRST TREATMENT
     Route: 042
     Dates: start: 20160711
  8. PREDNISOLON ^DLF^ [Suspect]
     Active Substance: PREDNISOLONE
     Indication: HODGKIN^S DISEASE STAGE IV
     Dosage: THREE SERIES OF BEACOPP THERAPY, STRENGTH: 5 MG
     Route: 048
     Dates: end: 20161025
  9. SENDOXAN [Suspect]
     Active Substance: CYCLOPHOSPHAMIDE
     Indication: HODGKIN^S DISEASE STAGE IV
     Dosage: THREE SERIES OF BEACOPP THERAPY
     Route: 042
     Dates: end: 20161025
  10. DACARBAZINE. [Suspect]
     Active Substance: DACARBAZINE
     Dosage: TWO MORE PLANNED TREATMENTS
     Route: 042
     Dates: end: 20161025
  11. VELBE [Suspect]
     Active Substance: VINBLASTINE SULFATE
     Dosage: ABVD THERAPY, POSTPONED SECOND TREATMENT, STRENGTH: 10 MG
     Route: 042
  12. ETOPOSID [Suspect]
     Active Substance: ETOPOSIDE
     Indication: HODGKIN^S DISEASE STAGE IV
     Dosage: THREE SERIES OF BEACOPP THERAPY, STRENGTH: 20 MG/ML
     Route: 042
     Dates: end: 20161025
  13. DOXORUBICIN [Suspect]
     Active Substance: DOXORUBICIN
     Dosage: TWO MORE PLANNED TREATMENTS, STRENGTH: 2 MG/ML
     Route: 042
     Dates: end: 20161025
  14. VELBE [Suspect]
     Active Substance: VINBLASTINE SULFATE
     Dosage: TWO MORE PLANNED TREATMENTS, STRENGTH: 10 MG
     Route: 042
     Dates: end: 20161025
  15. BLEOMYCIN [Suspect]
     Active Substance: BLEOMYCIN SULFATE
     Dosage: THREE SERIES OF BEACOPP THERAPY, STRENGTH: 15.000 IE
     Route: 065
     Dates: end: 20161025
  16. ONCOVIN [Suspect]
     Active Substance: VINCRISTINE SULFATE
     Indication: HODGKIN^S DISEASE STAGE IV
     Dosage: THREE SERIES OF BEACOPP THERAPY
     Route: 042
     Dates: end: 20161025
  17. ADRIAMYCIN [Suspect]
     Active Substance: DOXORUBICIN HYDROCHLORIDE
     Indication: HODGKIN^S DISEASE STAGE IV
     Dosage: THREE SERIES OF BEACOPP THERAPY
     Route: 065
     Dates: end: 20161025
  18. BLEOMYCIN [Suspect]
     Active Substance: BLEOMYCIN SULFATE
     Indication: HODGKIN^S DISEASE STAGE IV
     Dosage: ABVD THERAPY, FIRST TREATMENT, STRENGTH: 15.000 IE
     Route: 065
     Dates: start: 20160711
  19. DOXORUBICIN [Suspect]
     Active Substance: DOXORUBICIN
     Indication: HODGKIN^S DISEASE STAGE IV
     Dosage: ABVD THERAPY, FIRST TREATMENT, STRENGTH: 2 MG/ML
     Route: 042
     Dates: start: 20160711

REACTIONS (9)
  - Paraesthesia [Recovering/Resolving]
  - Pain in extremity [Unknown]
  - Peripheral motor neuropathy [Not Recovered/Not Resolved]
  - Discomfort [Unknown]
  - Peroneal nerve palsy [Unknown]
  - Paraesthesia [Recovering/Resolving]
  - Peripheral sensory neuropathy [Not Recovered/Not Resolved]
  - Nerve injury [Unknown]
  - Infection [Recovered/Resolved]

NARRATIVE: CASE EVENT DATE: 201607
